FAERS Safety Report 11456454 (Version 1)
Quarter: 2015Q3

REPORT INFORMATION
  Report Type: Spontaneous
  Country: US (occurrence: US)
  Receive Date: 20150903
  Receipt Date: 20150903
  Transmission Date: 20151125
  Serious: Yes (Other)
  Sender: FDA-Public Use
  Company Number: US-TAKEDA-2014TUS002028

PATIENT

DRUGS (7)
  1. GLUCOTROL [Concomitant]
     Active Substance: GLIPIZIDE
     Dosage: 20 MG, UNK
     Dates: start: 1989
  2. CANAGLIFLOZIN [Concomitant]
     Active Substance: CANAGLIFLOZIN
     Indication: DIABETES MELLITUS
     Dosage: UNK
     Dates: start: 201003, end: 201107
  3. ACTOPLUS MET [Suspect]
     Active Substance: METFORMIN HYDROCHLORIDE\PIOGLITAZONE HYDROCHLORIDE
     Indication: TYPE 2 DIABETES MELLITUS
     Dosage: 30/1700 MG, UNK
     Route: 048
     Dates: start: 200801, end: 200809
  4. METFORMIN [Concomitant]
     Active Substance: METFORMIN HYDROCHLORIDE
     Dosage: 2000 MG, UNK
     Dates: start: 1989
  5. AVANDIA [Concomitant]
     Active Substance: ROSIGLITAZONE MALEATE
     Dosage: UNK
     Dates: start: 2007, end: 2009
  6. ACTOS [Suspect]
     Active Substance: PIOGLITAZONE HYDROCHLORIDE
     Indication: TYPE 2 DIABETES MELLITUS
     Dosage: 45 MG, UNK
     Route: 048
     Dates: start: 200809, end: 201106
  7. JANUVIA [Concomitant]
     Active Substance: SITAGLIPTIN PHOSPHATE
     Dosage: 50 MG, UNK
     Dates: start: 2011

REACTIONS (1)
  - Bladder cancer [Unknown]

NARRATIVE: CASE EVENT DATE: 20110323
